FAERS Safety Report 10184097 (Version 1)
Quarter: 2014Q2

REPORT INFORMATION
  Report Type: Spontaneous
  Country: PL (occurrence: PL)
  Receive Date: 20140520
  Receipt Date: 20140520
  Transmission Date: 20141212
  Serious: Yes (Life-Threatening)
  Sender: FDA-Public Use
  Company Number: PL-ELI_LILLY_AND_COMPANY-PL201405003845

PATIENT
  Age: 11 Year
  Sex: Male

DRUGS (2)
  1. HUMAN INSULIN (RDNA ORIGIN) 50% REGULAR, 50% NPH [Suspect]
     Indication: TYPE 1 DIABETES MELLITUS
     Dosage: 3 U, UNKNOWN
     Route: 058
  2. HUMALOG LISPRO [Suspect]
     Indication: TYPE 1 DIABETES MELLITUS
     Dosage: 2 U, UNKNOWN
     Route: 058

REACTIONS (2)
  - Hyperglycaemia [Recovered/Resolved]
  - Drug ineffective [Unknown]
